FAERS Safety Report 24642770 (Version 2)
Quarter: 2025Q1

REPORT INFORMATION
  Report Type: Spontaneous
  Country: US (occurrence: US)
  Receive Date: 20241120
  Receipt Date: 20250131
  Transmission Date: 20250408
  Serious: Yes (Hospitalization)
  Sender: DOMPE FARMACEUTICI
  Company Number: US-FARMAPROD-202411-3875

PATIENT
  Age: 82 Year
  Sex: Male

DRUGS (13)
  1. OXERVATE [Suspect]
     Active Substance: CENEGERMIN-BKBJ
     Indication: Neurotrophic keratopathy
     Route: 047
     Dates: start: 20240918, end: 20241101
  2. PREDNISOLONE-BROMFENAC [Concomitant]
  3. CALCITRIOL [Concomitant]
     Active Substance: CALCITRIOL
  4. LATANOPROST [Concomitant]
     Active Substance: LATANOPROST
  5. HUMULIN 70-30 [Concomitant]
  6. SYMBICORT [Concomitant]
     Active Substance: BUDESONIDE\FORMOTEROL FUMARATE DIHYDRATE
  7. ALBUTEROL SULFATE [Concomitant]
     Active Substance: ALBUTEROL SULFATE
  8. LIPITOR [Concomitant]
     Active Substance: ATORVASTATIN CALCIUM
  9. GABAPENTIN [Concomitant]
     Active Substance: GABAPENTIN
  10. LOKELMA [Concomitant]
     Active Substance: SODIUM ZIRCONIUM CYCLOSILICATE
  11. FUROSEMIDE [Concomitant]
     Active Substance: FUROSEMIDE
  12. TOPAMAX [Concomitant]
     Active Substance: TOPIRAMATE
  13. ELIQUIS [Concomitant]
     Active Substance: APIXABAN

REACTIONS (2)
  - Fall [Unknown]
  - Hip fracture [Recovering/Resolving]
